FAERS Safety Report 14603542 (Version 2)
Quarter: 2018Q1

REPORT INFORMATION
  Report Type: Spontaneous
  Country: JP (occurrence: JP)
  Receive Date: 20180306
  Receipt Date: 20180319
  Transmission Date: 20180509
  Serious: Yes (Other)
  Sender: FDA-Public Use
  Company Number: JP-SA-2018SA062006

PATIENT
  Age: 42 Year
  Sex: Male
  Weight: 78 kg

DRUGS (3)
  1. AVAPRO [Suspect]
     Active Substance: IRBESARTAN
     Route: 048
  2. ATORVASTATIN CALCIUM. [Concomitant]
     Active Substance: ATORVASTATIN CALCIUM
  3. CILNIDIPINE [Concomitant]
     Active Substance: CILNIDIPINE

REACTIONS (1)
  - Benign pancreatic neoplasm [Unknown]
